FAERS Safety Report 9286617 (Version 1)
Quarter: 2013Q2

REPORT INFORMATION
  Report Type: Spontaneous
  Country: BB (occurrence: BB)
  Receive Date: 20130513
  Receipt Date: 20130513
  Transmission Date: 20140414
  Serious: Yes (Other)
  Sender: FDA-Public Use
  Company Number: PHHY2013BB046551

PATIENT
  Age: 79 Year
  Sex: Female

DRUGS (5)
  1. PRAVASTATIN [Suspect]
  2. ROSUVASTATIN [Suspect]
     Dosage: 20 MG DAILY
  3. ASPIRIN [Concomitant]
     Dosage: 81 MG, DAILY
  4. FELODIPINE [Concomitant]
     Dosage: 10 MG, UNK
  5. INDAPAMIDE [Concomitant]
     Dosage: 1.5 MG, UNK

REACTIONS (4)
  - Parapsoriasis [Recovered/Resolved]
  - Rash papular [Recovered/Resolved]
  - Tinea versicolour [Recovered/Resolved]
  - Dry skin [Recovered/Resolved]
